FAERS Safety Report 4583283-7 (Version None)
Quarter: 2005Q1

REPORT INFORMATION
  Report Type: 
  Country: None (occurrence: None)
  Receive Date: 20050125
  Receipt Date: 20041118
  Transmission Date: 20050727
  Serious: No
  Sender: FDA-Public Use
  Company Number: USA041184081

PATIENT
  Age: 56 Year
  Sex: Female

DRUGS (5)
  1. FORTEO [Suspect]
     Indication: OSTEOPENIA
     Dates: start: 20040601, end: 20041101
  2. PAXIL [Concomitant]
  3. AMBIEN [Concomitant]
  4. CITRACEL WITH VITAMIN D [Concomitant]
  5. CELEBREX [Concomitant]

REACTIONS (3)
  - FEELING ABNORMAL [None]
  - JOINT SWELLING [None]
  - MUSCULOSKELETAL DISCOMFORT [None]
